FAERS Safety Report 15648444 (Version 1)
Quarter: 2018Q4

REPORT INFORMATION
  Report Type: Spontaneous
  Country: US (occurrence: US)
  Receive Date: 20181122
  Receipt Date: 20181122
  Transmission Date: 20190205
  Serious: No
  Sender: FDA-Public Use
  Company Number: US-PFIZER INC-2018478211

PATIENT
  Sex: Female

DRUGS (1)
  1. LYRICA [Suspect]
     Active Substance: PREGABALIN
     Indication: COMPLEX REGIONAL PAIN SYNDROME
     Dosage: PROBABLY 75 AT NIGHT AND 50 IN THE MORNING
     Dates: start: 201803, end: 2018

REACTIONS (3)
  - Disturbance in attention [Recovering/Resolving]
  - Product use in unapproved indication [Unknown]
  - Feeling drunk [Recovering/Resolving]

NARRATIVE: CASE EVENT DATE: 2018
